FAERS Safety Report 4324744-5 (Version None)
Quarter: 2004Q1

REPORT INFORMATION
  Report Type: 
  Country: None (occurrence: None)
  Receive Date: 20040326
  Receipt Date: 20040319
  Transmission Date: 20041129
  Serious: Yes (Disabling)
  Sender: FDA-Public Use
  Company Number: WAES 0403USA01941

PATIENT
  Age: 78 Year
  Sex: Female

DRUGS (5)
  1. NORVASC [Concomitant]
  2. FOLIC ACID [Concomitant]
  3. SYNTHROID [Concomitant]
  4. TOPROL-XL [Concomitant]
     Indication: HYPERTENSION
  5. ZOCOR [Suspect]
     Indication: BLOOD CHOLESTEROL INCREASED
     Route: 048
     Dates: start: 20030101

REACTIONS (2)
  - ARTHRITIS [None]
  - PAIN IN EXTREMITY [None]
